FAERS Safety Report 9848344 (Version 1)
Quarter: 2013Q4

REPORT INFORMATION
  Report Type: Spontaneous
  Country: US (occurrence: None)
  Receive Date: 20131224
  Receipt Date: 20131224
  Transmission Date: 20140711
  Serious: Yes (Other)
  Sender: FDA-Public Use
  Company Number: PHEH2012US023551

PATIENT
  Age: 51 Year
  Sex: Female

DRUGS (12)
  1. EXJADE [Suspect]
     Indication: IRON OVERLOAD
     Route: 048
     Dates: start: 20080925, end: 20121203
  2. VIDAZA (AZACITIDINE) (UNKNOWN) [Concomitant]
  3. VIDAZA (AZACITIDINE) (UNKNOWN) [Concomitant]
  4. DEXAMETHASONE (DEXAMETHASONE), 4 MG [Concomitant]
  5. DIPHENOXYLATE W/ATROPINE SULFATE (ATROPINE SULFATE, DIPHENOXYLATE), 2.5-0.025 MG [Concomitant]
  6. IMODIUM (LOPERAMIDE HYDROCHLORIDE), 2 MG [Concomitant]
  7. MEGESTROL ACETATE (MEGESTROL ACETATE), 800MG/20ML MG/ML? [Concomitant]
  8. OXYCODONE / ACETAMINOPHEN (OXYCODONE HYDROCHLORIDE, PARACETAMOL) [Concomitant]
  9. PREMARIN (ESTROGENS CONJUGATED), 0.6625 MG [Concomitant]
  10. PROCHLORPERAZINE (PROCHLORPERAZINE) [Concomitant]
  11. FUROSEMIDE (FUROSEMIDE), 20 MG [Concomitant]
  12. VICODIN (HYDROCODONE BITARTRATE, PARACETAMOL) [Concomitant]

REACTIONS (25)
  - Haemochromatosis [None]
  - Muscular weakness [None]
  - Grip strength decreased [None]
  - Pelvic pain [None]
  - Drug hypersensitivity [None]
  - Hypersplenism [None]
  - Drug intolerance [None]
  - Dermatophytosis [None]
  - Abdominal tenderness [None]
  - Rhinitis allergic [None]
  - Malaise [None]
  - Decreased appetite [None]
  - Joint stiffness [None]
  - Blood pressure abnormal [None]
  - Heart rate increased [None]
  - Respiratory rate increased [None]
  - Blood glucose increased [None]
  - Blood alkaline phosphatase increased [None]
  - Diarrhoea [None]
  - Rash [None]
  - Anaemia [None]
  - Nausea [None]
  - Vomiting [None]
  - Fatigue [None]
  - Serum ferritin increased [None]
